FAERS Safety Report 7207715-0 (Version None)
Quarter: 2011Q1

REPORT INFORMATION
  Report Type: 
  Country: None (occurrence: None)
  Receive Date: 20110103
  Receipt Date: 20101229
  Transmission Date: 20110831
  Serious: Yes (Other)
  Sender: FDA-Public Use
  Company Number: KR-JNJFOC-20101107597

PATIENT
  Age: 74 Year
  Sex: Male

DRUGS (5)
  1. DURAGESIC-100 [Suspect]
     Route: 062
  2. DURAGESIC-100 [Suspect]
     Route: 062
  3. DURAGESIC-100 [Suspect]
     Dosage: HALF OF 25 UG/HR
     Route: 062
  4. DURAGESIC-100 [Suspect]
     Indication: PAIN MANAGEMENT
     Route: 062
  5. ANTIPSYCHOTIC [Suspect]
     Indication: ILL-DEFINED DISORDER
     Route: 065

REACTIONS (3)
  - DEPRESSION [None]
  - HALLUCINATION [None]
  - DRUG ADMINISTRATION ERROR [None]
